FAERS Safety Report 8399825-X (Version None)
Quarter: 2012Q2

REPORT INFORMATION
  Report Type: 
  Country: None (occurrence: None)
  Receive Date: 20120531
  Receipt Date: 20120529
  Transmission Date: 20120825
  Serious: Yes (Other)
  Sender: FDA-Public Use
  Company Number: US-PFIZER INC-2012129087

PATIENT

DRUGS (2)
  1. LIPITOR [Suspect]
     Dosage: UNK
  2. SPIRIVA [Suspect]
     Dosage: UNK

REACTIONS (2)
  - HIP FRACTURE [None]
  - CHRONIC OBSTRUCTIVE PULMONARY DISEASE [None]
